FAERS Safety Report 9714279 (Version 2)
Quarter: 2013Q4

REPORT INFORMATION
  Report Type: Spontaneous
  Country: US (occurrence: US)
  Receive Date: 20131126
  Receipt Date: 20131126
  Transmission Date: 20140711
  Serious: No
  Sender: FDA-Public Use
  Company Number: US-GILEAD-2008-0018867

PATIENT
  Age: 79 Year
  Sex: Male
  Weight: 91.17 kg

DRUGS (8)
  1. LETAIRIS [Suspect]
     Indication: PULMONARY ARTERIAL HYPERTENSION
     Route: 048
     Dates: start: 20080821, end: 20081112
  2. REVATIO [Concomitant]
  3. FOSINOPRIL [Concomitant]
  4. LASIX [Concomitant]
  5. SYNTHROID [Concomitant]
  6. METOPROLOL [Concomitant]
  7. PREVACID [Concomitant]
  8. ALLOPURINOL [Concomitant]

REACTIONS (1)
  - Pruritus [Recovered/Resolved]
